FAERS Safety Report 4500310-3 (Version None)
Quarter: 2004Q4

REPORT INFORMATION
  Report Type: 
  Country: None (occurrence: None)
  Receive Date: 20041112
  Receipt Date: 20030605
  Transmission Date: 20050328
  Serious: Yes (Disabling)
  Sender: FDA-Public Use
  Company Number: US-MERCK-0306USA00887

PATIENT
  Age: 57 Year
  Sex: Female
  Weight: 102 kg

DRUGS (2)
  1. VIOXX [Suspect]
     Indication: BACK PAIN
     Route: 048
     Dates: start: 20000501
  2. VIOXX [Suspect]
     Indication: ARTHRALGIA
     Route: 048
     Dates: start: 20000501

REACTIONS (18)
  - ADVERSE EVENT [None]
  - BACK PAIN [None]
  - CONTUSION [None]
  - DIZZINESS [None]
  - DRUG INEFFECTIVE [None]
  - FATIGUE [None]
  - INJURY [None]
  - INSOMNIA [None]
  - INTERVERTEBRAL DISC DISORDER [None]
  - JOINT SPRAIN [None]
  - LIGAMENT SPRAIN [None]
  - OSTEOARTHRITIS [None]
  - POST-TRAUMATIC HEADACHE [None]
  - RADICULITIS CERVICAL [None]
  - SPINAL COLUMN STENOSIS [None]
  - SPONDYLOSIS [None]
  - STRESS SYMPTOMS [None]
  - THYROID CYST [None]
